FAERS Safety Report 7721462-8 (Version None)
Quarter: 2011Q3

REPORT INFORMATION
  Report Type: 
  Country: None (occurrence: None)
  Receive Date: 20110831
  Receipt Date: 20110825
  Transmission Date: 20111222
  Serious: Yes (Hospitalization, Other)
  Sender: FDA-Public Use
  Company Number: KR-BAYER-2011-049852

PATIENT
  Age: 62 Year
  Sex: Male
  Weight: 67 kg

DRUGS (109)
  1. MEK INHIBITOR (DIHYDROXYPROP-DIFLU-METHOXYPHEN-CYCLOPROPA-SULFAMI) [Suspect]
     Dosage: 50 MG, BID
     Route: 048
     Dates: start: 20110420, end: 20110421
  2. MEK INHIBITOR (DIHYDROXYPROP-DIFLU-METHOXYPHEN-CYCLOPROPA-SULFAMI) [Suspect]
     Dosage: 30 MG, QD
     Route: 048
     Dates: start: 20110603, end: 20110606
  3. NEXAVAR [Suspect]
     Indication: HEPATIC NEOPLASM MALIGNANT
     Dosage: 600 MG, QD(200MG AM/400MG PM)
     Route: 048
     Dates: start: 20110107, end: 20110113
  4. NEXAVAR [Suspect]
     Dosage: 600 MG, QD(200MG AM/ 400 MG PM)
     Route: 048
     Dates: start: 20110115, end: 20110120
  5. NEXAVAR [Suspect]
     Dosage: 400 MG, QD (PM)
     Route: 048
     Dates: start: 20110207, end: 20110207
  6. NEXAVAR [Suspect]
     Dosage: 400 MG, QD (PM)
     Route: 048
     Dates: start: 20110704, end: 20110704
  7. NEXAVAR [Suspect]
     Dosage: 600 MG, QD (200 MG AM / 400 MG PM)
     Route: 048
     Dates: start: 20110705, end: 20110711
  8. NEXAVAR [Suspect]
     Dosage: 600 MG, QD (200 MG AM / 400 MG PM)
     Route: 048
     Dates: start: 20110804
  9. HEXAMIDINE [Concomitant]
     Dosage: 100 ML, BID
     Dates: start: 20110602, end: 20110608
  10. CONTRAST MEDIA [Concomitant]
     Dosage: 10 ML, QD
     Route: 042
     Dates: start: 20110511, end: 20110511
  11. TERBINAFINE HCL [Concomitant]
     Indication: TINEA PEDIS
     Dosage: 15 G QD
     Route: 061
     Dates: start: 20110512
  12. NEXAVAR [Suspect]
     Dosage: 600 MG, QD (200 MGAM/400 MG PM)
     Route: 048
     Dates: start: 20110219, end: 20110309
  13. NEXAVAR [Suspect]
     Dosage: 600 MG, QD (200 MG AM/400 MG PM)
     Route: 048
     Dates: start: 20110402, end: 20110403
  14. NEXAVAR [Suspect]
     Dosage: 400 MG, QD (PM)
     Route: 048
     Dates: start: 20110512, end: 20110512
  15. HEXAMIDINE [Concomitant]
     Dosage: 100 ML, QD
     Dates: start: 20110512, end: 20110524
  16. TRIAMCINOLONE [Concomitant]
     Indication: STOMATITIS
     Dosage: 1ML
     Route: 061
     Dates: start: 20110121, end: 20110309
  17. MEGACE [Concomitant]
     Dosage: 10 ML, QD
     Route: 048
     Dates: start: 20110310, end: 20110316
  18. MEGACE [Concomitant]
     Dosage: 10 ML, QD
     Route: 048
     Dates: start: 20110401, end: 20110407
  19. OPTIRAY 160 [Concomitant]
     Dosage: 100 ML, QD
     Route: 042
     Dates: start: 20110512, end: 20110512
  20. BACTROBAN [Concomitant]
     Indication: EXCORIATION
     Dosage: 10 G, PRN
     Route: 061
     Dates: start: 20110211, end: 20110309
  21. BACTROBAN [Concomitant]
     Dosage: 10 G, PRN
     Route: 061
     Dates: start: 20110404, end: 20110422
  22. LACTULOSE [Concomitant]
     Indication: CONSTIPATION PROPHYLAXIS
     Dosage: 20 ML, TID
     Route: 048
     Dates: start: 20110218, end: 20110310
  23. LIPID EMULSION [Concomitant]
     Dosage: 250 ML, QD
     Route: 042
     Dates: start: 20110404, end: 20110404
  24. ULTRAVIST 150 [Concomitant]
     Dosage: 100 ML, QD
     Route: 042
     Dates: start: 20110803, end: 20110803
  25. MEK INHIBITOR (DIHYDROXYPROP-DIFLU-METHOXYPHEN-CYCLOPROPA-SULFAMI) [Suspect]
     Dosage: 50 MG, QD
     Route: 048
     Dates: start: 20110207, end: 20110207
  26. MEK INHIBITOR (DIHYDROXYPROP-DIFLU-METHOXYPHEN-CYCLOPROPA-SULFAMI) [Suspect]
     Dosage: 50 MG, BID
     Route: 048
     Dates: start: 20110208, end: 20110216
  27. MEK INHIBITOR (DIHYDROXYPROP-DIFLU-METHOXYPHEN-CYCLOPROPA-SULFAMI) [Suspect]
     Dosage: 50 MG, BID
     Route: 048
     Dates: start: 20110219, end: 20110309
  28. MEK INHIBITOR (DIHYDROXYPROP-DIFLU-METHOXYPHEN-CYCLOPROPA-SULFAMI) [Suspect]
     Dosage: 30 MG, BID
     Route: 048
     Dates: start: 20110423, end: 20110511
  29. NEXAVAR [Suspect]
     Dosage: 600 MG, QD(200 MG AM/ 400 MG PM)
     Route: 048
     Dates: start: 20110319, end: 20110331
  30. ULTRACET [Concomitant]
     Indication: ARTHRALGIA
     Dosage: 1 TAB TID
     Dates: start: 20101015, end: 20110120
  31. MYDRIN P [Concomitant]
     Indication: MYDRIASIS
     Dosage: 10 ML, QD
     Dates: start: 20101224, end: 20101224
  32. HEXAMIDINE [Concomitant]
     Indication: STOMATITIS
     Dosage: 100 ML, PRN
     Dates: start: 20110117, end: 20110121
  33. FESTAL [Concomitant]
     Indication: VOMITING
     Dosage: 1 TBSPN TID
     Route: 048
     Dates: start: 20110117, end: 20110309
  34. MEGACE [Concomitant]
     Dosage: 10 ML, QD
     Route: 048
     Dates: start: 20110512, end: 20110518
  35. MEGACE [Concomitant]
     Dosage: 10 ML, QD
     Route: 048
     Dates: start: 20110804
  36. CONTRAST MEDIA [Concomitant]
     Indication: NUCLEAR MAGNETIC RESONANCE IMAGING
     Dosage: 20 ML, QD
     Route: 042
     Dates: start: 20101224, end: 20101224
  37. MEK INHIBITOR (DIHYDROXYPROP-DIFLU-METHOXYPHEN-CYCLOPROPA-SULFAMI) [Suspect]
     Dosage: 50 MG, BID
     Route: 048
     Dates: start: 20110115, end: 20110120
  38. MEK INHIBITOR (DIHYDROXYPROP-DIFLU-METHOXYPHEN-CYCLOPROPA-SULFAMI) [Suspect]
     Dosage: 50 MG, BID
     Route: 048
     Dates: start: 20110402, end: 20110403
  39. MEK INHIBITOR (DIHYDROXYPROP-DIFLU-METHOXYPHEN-CYCLOPROPA-SULFAMI) [Suspect]
     Dosage: 20 MG, BID (20 MG AM / 20 MG PM)
     Route: 048
     Dates: start: 20110712, end: 20110803
  40. MEK INHIBITOR (DIHYDROXYPROP-DIFLU-METHOXYPHEN-CYCLOPROPA-SULFAMI) [Suspect]
     Dosage: 20 MG, BID (20 MG AM / 20 MG PM)
     Route: 048
     Dates: start: 20110804
  41. NEXAVAR [Suspect]
     Dosage: 400 MG, QD (PM)
     Route: 048
     Dates: start: 20110128, end: 20110128
  42. NEXAVAR [Suspect]
     Dosage: 400 MG, QD (PM)
     Route: 048
     Dates: start: 20110217, end: 20110217
  43. NEXAVAR [Suspect]
     Dosage: 600 MG, QD (200 MG AM/ 400 MG PM)
     Route: 048
     Dates: start: 20110405, end: 20110418
  44. NEXAVAR [Suspect]
     Dosage: 600 MG, QD
     Route: 048
     Dates: start: 20110422, end: 20110511
  45. NEXAVAR [Suspect]
     Dosage: 600 MG, QD(200 MG AM/400 MG PM)
     Route: 048
     Dates: start: 20110513, end: 20110528
  46. URSODIOL [Concomitant]
     Indication: HEPATITIS B
     Dosage: 200 MG, BID
     Route: 048
     Dates: start: 20100527
  47. THIAMINE [Concomitant]
     Indication: HEPATITIS B
     Dosage: 20 MG, BID
     Route: 048
     Dates: start: 20100527
  48. MAGNESIUM OXIDE [Concomitant]
     Indication: CONSTIPATION PROPHYLAXIS
     Dosage: 500 MG, BID
     Route: 048
     Dates: start: 20101130
  49. AMARYL [Concomitant]
     Indication: DIABETES MELLITUS
     Dosage: 1 TAB BID
     Dates: start: 20101023
  50. MEGACE [Concomitant]
     Indication: PROPHYLAXIS
     Dosage: 10 ML, QD
     Route: 048
     Dates: start: 20101213, end: 20101219
  51. OPTIRAY 160 [Concomitant]
     Dosage: 100 ML, QD
     Route: 042
     Dates: start: 20110218, end: 20110218
  52. OPTIRAY 160 [Concomitant]
     Dosage: 100 ML, QD
     Route: 042
     Dates: start: 20110624, end: 20110624
  53. LACTULOSE [Concomitant]
     Dosage: 20 ML, TID
     Route: 048
     Dates: start: 20110624
  54. HEPATAMINE [Concomitant]
     Dosage: 500 MG, QD
     Route: 042
     Dates: start: 20110404, end: 20110404
  55. TRIAMCINOLONE ACETONIDE [Concomitant]
     Indication: RETINAL VASCULAR THROMBOSIS
     Dosage: 40 MG, QD
     Route: 061
     Dates: start: 20110607, end: 20110607
  56. LACTICARE HC [Concomitant]
     Indication: URTICARIA
     Dosage: 118 ML, PRN
     Route: 061
     Dates: start: 20110624, end: 20110801
  57. MEK INHIBITOR (DIHYDROXYPROP-DIFLU-METHOXYPHEN-CYCLOPROPA-SULFAMI) [Suspect]
     Dosage: 50 MG, BID
     Route: 048
     Dates: start: 20110129, end: 20110206
  58. NEXAVAR [Suspect]
     Dosage: 600 MG, QD(200MG AM/ 400MG PM)
     Route: 048
     Dates: start: 20110128, end: 20110206
  59. ANALGESICS [Concomitant]
     Indication: ARTHRALGIA
     Dosage: 5 MG, PRN
     Route: 048
     Dates: start: 20100527, end: 20110309
  60. MYDRIN P [Concomitant]
     Dosage: 1 ML, QD
     Route: 061
     Dates: start: 20110624, end: 20110624
  61. HEXAMIDINE [Concomitant]
     Dosage: 100 ML, PRN
     Dates: start: 20110310, end: 20110401
  62. HEXAMIDINE [Concomitant]
     Dosage: 100 ML, BID
     Dates: start: 20110624, end: 20110703
  63. MEGACE [Concomitant]
     Dosage: 10 ML, QD
     Route: 048
     Dates: start: 20110712, end: 20110718
  64. HEPATAMINE [Concomitant]
     Indication: PARENTERAL NUTRITION
     Dosage: 500 MG, QD
     Route: 042
     Dates: start: 20110318, end: 20110318
  65. MEK INHIBITOR (DIHYDROXYPROP-DIFLU-METHOXYPHEN-CYCLOPROPA-SULFAMI) [Suspect]
     Indication: HEPATIC NEOPLASM MALIGNANT
     Dosage: 50 MG, BID
     Route: 048
     Dates: start: 20110107, end: 20110113
  66. MEK INHIBITOR (DIHYDROXYPROP-DIFLU-METHOXYPHEN-CYCLOPROPA-SULFAMI) [Suspect]
     Dosage: 50 MG, QD
     Route: 048
     Dates: start: 20110217, end: 20110217
  67. MEK INHIBITOR (DIHYDROXYPROP-DIFLU-METHOXYPHEN-CYCLOPROPA-SULFAMI) [Suspect]
     Dosage: 50 MG, BID
     Route: 048
     Dates: start: 20110319, end: 20110331
  68. MEK INHIBITOR (DIHYDROXYPROP-DIFLU-METHOXYPHEN-CYCLOPROPA-SULFAMI) [Suspect]
     Dosage: 30 MG, BID
     Route: 048
     Dates: start: 20110513, end: 20110528
  69. MEK INHIBITOR (DIHYDROXYPROP-DIFLU-METHOXYPHEN-CYCLOPROPA-SULFAMI) [Suspect]
     Dosage: 30 MG, QD (PM)
     Route: 048
     Dates: start: 20110602, end: 20110602
  70. MEK INHIBITOR (DIHYDROXYPROP-DIFLU-METHOXYPHEN-CYCLOPROPA-SULFAMI) [Suspect]
     Dosage: 20 MG, BID (20 MG AM / 20 MG PM)
     Route: 048
     Dates: start: 20110705, end: 20110711
  71. NEXAVAR [Suspect]
     Dosage: 400 MG, QD(PM)
     Route: 048
     Dates: start: 20110318, end: 20110318
  72. NEXAVAR [Suspect]
     Dosage: 400 MG, QD (PM)
     Route: 048
     Dates: start: 20110404, end: 20110404
  73. MYDRIN P [Concomitant]
     Dosage: 1 ML, QD
     Route: 061
     Dates: start: 20110607, end: 20110607
  74. METOCLOPRAMIDE [Concomitant]
     Indication: VOMITING
     Dosage: 2.5 MG, TID
     Route: 048
     Dates: start: 20110117
  75. METOCLOPRAMIDE [Concomitant]
     Dosage: 2.5 MG, TID
     Route: 048
     Dates: start: 20110422
  76. MEGACE [Concomitant]
     Dosage: 10 ML, QD
     Route: 048
     Dates: start: 20110624, end: 20110630
  77. CONTRAST MEDIA [Concomitant]
     Dosage: 10 ML, QD
     Route: 042
     Dates: start: 20110401, end: 20110401
  78. CONTRAST MEDIA [Concomitant]
     Dosage: 10 ML, QD
     Route: 042
     Dates: start: 20110624, end: 20110624
  79. OPTIRAY 160 [Concomitant]
     Indication: COMPUTERISED TOMOGRAM
     Dosage: 100 ML, QD
     Route: 042
     Dates: start: 20101228, end: 20101228
  80. LIPID EMULSION [Concomitant]
     Indication: DECREASED APPETITE
     Dosage: 250 ML, QD
     Route: 042
     Dates: start: 20110310, end: 20110310
  81. LIPID EMULSION [Concomitant]
     Dosage: 250 ML, QD
     Dates: start: 20110318, end: 20110318
  82. MEK INHIBITOR (DIHYDROXYPROP-DIFLU-METHOXYPHEN-CYCLOPROPA-SULFAMI) [Suspect]
     Dosage: 50 MG, QD
     Route: 048
     Dates: start: 20110128, end: 20110128
  83. MEK INHIBITOR (DIHYDROXYPROP-DIFLU-METHOXYPHEN-CYCLOPROPA-SULFAMI) [Suspect]
     Dosage: 80 MG, QD(50 MG AM 30 MG PM)
     Route: 048
     Dates: start: 20110422, end: 20110422
  84. MEK INHIBITOR (DIHYDROXYPROP-DIFLU-METHOXYPHEN-CYCLOPROPA-SULFAMI) [Suspect]
     Dosage: 20 MG, QD (PM)
     Dates: start: 20110704, end: 20110704
  85. NEXAVAR [Suspect]
     Dosage: 600 MG, QD(200 MG AM/400 MG PM)
     Route: 048
     Dates: start: 20110208, end: 20110216
  86. NEXAVAR [Suspect]
     Dosage: 600 MG, QD(200 MG AM/400 MG PM)
     Route: 048
     Dates: start: 20110420, end: 20110421
  87. NEXAVAR [Suspect]
     Dosage: 600 MG, QD (200 MG AM / 400 MG PM)
     Route: 048
     Dates: start: 20110712, end: 20110803
  88. DURAGESIC-100 [Concomitant]
     Indication: ARTHRALGIA
     Dosage: 50 ?G, QOD
     Route: 062
     Dates: start: 20100623
  89. HEXAMIDINE [Concomitant]
     Dosage: 100 ML, QD
     Dates: start: 20110422, end: 20110430
  90. TRIAMCINOLONE [Concomitant]
     Dosage: 10 G, PRN
     Route: 061
     Dates: start: 20110422
  91. ULTRAVIST 150 [Concomitant]
     Indication: COMPUTERISED TOMOGRAM
     Dosage: 500 ML, QD
     Route: 042
     Dates: start: 20110404, end: 20110404
  92. MEK INHIBITOR (DIHYDROXYPROP-DIFLU-METHOXYPHEN-CYCLOPROPA-SULFAMI) [Suspect]
     Dosage: 50 MG, QD
     Route: 048
     Dates: start: 20110318, end: 20110318
  93. MEK INHIBITOR (DIHYDROXYPROP-DIFLU-METHOXYPHEN-CYCLOPROPA-SULFAMI) [Suspect]
     Dosage: 50 MG, QD
     Route: 048
     Dates: start: 20110404, end: 20110404
  94. MEK INHIBITOR (DIHYDROXYPROP-DIFLU-METHOXYPHEN-CYCLOPROPA-SULFAMI) [Suspect]
     Dosage: 50 MG, BID
     Route: 048
     Dates: start: 20110405, end: 20110418
  95. MEK INHIBITOR (DIHYDROXYPROP-DIFLU-METHOXYPHEN-CYCLOPROPA-SULFAMI) [Suspect]
     Dosage: 30 MG, QD(PM)
     Route: 048
     Dates: start: 20110512, end: 20110512
  96. NEXAVAR [Suspect]
     Dosage: 400 MG, QD (PM)
     Route: 048
     Dates: start: 20110602, end: 20110602
  97. NEXAVAR [Suspect]
     Dosage: 400 MG, QD (AM)
     Route: 048
     Dates: start: 20110603, end: 20110606
  98. MYDRIN P [Concomitant]
     Dosage: 1 ML, QD
     Route: 061
     Dates: start: 20110218, end: 20110218
  99. METOCLOPRAMIDE [Concomitant]
     Dosage: 2.5 MG, TID
     Route: 048
     Dates: start: 20110318, end: 20110417
  100. HEXAMIDINE [Concomitant]
     Dosage: 100 ML, PRN
     Route: 048
     Dates: start: 20110207, end: 20110218
  101. NORVASC [Concomitant]
     Indication: HYPERTENSION
     Dosage: 5 MG, QD
     Route: 048
     Dates: start: 20110207
  102. MEGACE [Concomitant]
     Dosage: 10 ML, QD
     Route: 048
     Dates: start: 20110422, end: 20110428
  103. MEGACE [Concomitant]
     Dosage: 10 ML, QD
     Route: 048
     Dates: start: 20110602, end: 20110608
  104. CONTRAST MEDIA [Concomitant]
     Dosage: 20 ML, QD
     Route: 042
     Dates: start: 20110217, end: 20110217
  105. CONTRAST MEDIA [Concomitant]
     Dosage: 10 ML, QD
     Route: 042
     Dates: start: 20110804, end: 20110804
  106. GASMOTIN [Concomitant]
     Indication: DECREASED APPETITE
     Dosage: 5 MG, TID
     Route: 048
     Dates: start: 20110310
  107. UREA [Concomitant]
     Indication: EXCORIATION
     Dosage: 30 G, PRN
     Route: 061
     Dates: start: 20110404, end: 20110422
  108. FLUORESCINE [Concomitant]
     Indication: ANGIOGRAM
     Dosage: 500 MG, QD
     Route: 042
     Dates: start: 20110607, end: 20110607
  109. TROPICAMIDE [Concomitant]
     Indication: MYDRIASIS
     Dosage: 0.8 ML, QD
     Route: 061
     Dates: start: 20110712, end: 20110712

REACTIONS (2)
  - ARTHRALGIA [None]
  - RETINAL VASCULAR THROMBOSIS [None]
